FAERS Safety Report 18331851 (Version 1)
Quarter: 2020Q3

REPORT INFORMATION
  Report Type: Spontaneous
  Country: US (occurrence: US)
  Receive Date: 20200930
  Receipt Date: 20200930
  Transmission Date: 20201103
  Serious: Yes (Hospitalization)
  Sender: FDA-Public Use
  Company Number: US-JNJFOC-20200938339

PATIENT
  Age: 46 Year
  Sex: Female
  Weight: 64 kg

DRUGS (16)
  1. CYCLOBENZAPRINE. [Concomitant]
     Active Substance: CYCLOBENZAPRINE
  2. STELARA [Suspect]
     Active Substance: USTEKINUMAB
     Indication: PSORIATIC ARTHROPATHY
     Route: 058
     Dates: start: 20200917
  3. CLONAZEPAM. [Concomitant]
     Active Substance: CLONAZEPAM
  4. LASIX [Concomitant]
     Active Substance: FUROSEMIDE
  5. TRAZODONE [Concomitant]
     Active Substance: TRAZODONE HYDROCHLORIDE
  6. LAMOTRIGINE. [Concomitant]
     Active Substance: LAMOTRIGINE
  7. LIDOCAINE. [Concomitant]
     Active Substance: LIDOCAINE
     Route: 061
  8. STELARA [Suspect]
     Active Substance: USTEKINUMAB
  9. ERGOCALCIFEROL. [Concomitant]
     Active Substance: ERGOCALCIFEROL
  10. BACLOFEN. [Concomitant]
     Active Substance: BACLOFEN
  11. FOLIC ACID. [Concomitant]
     Active Substance: FOLIC ACID
  12. ALBUTEROL                          /00139501/ [Concomitant]
     Active Substance: ALBUTEROL
  13. FAMOTIDINE. [Concomitant]
     Active Substance: FAMOTIDINE
  14. CELEBREX [Concomitant]
     Active Substance: CELECOXIB
  15. GABAPENTIN. [Concomitant]
     Active Substance: GABAPENTIN
  16. SINGULAIR [Concomitant]
     Active Substance: MONTELUKAST SODIUM

REACTIONS (4)
  - Eye swelling [Recovering/Resolving]
  - Wheezing [Recovering/Resolving]
  - Pain [Not Recovered/Not Resolved]
  - Hyperhidrosis [Recovering/Resolving]

NARRATIVE: CASE EVENT DATE: 20200917
